FAERS Safety Report 18963880 (Version 3)
Quarter: 2021Q1

REPORT INFORMATION
  Report Type: Spontaneous
  Country: US (occurrence: US)
  Receive Date: 20210303
  Receipt Date: 20210323
  Transmission Date: 20210420
  Serious: Yes (Other)
  Sender: FDA-Public Use
  Company Number: US-AMGEN-USASP2021031242

PATIENT
  Age: 76 Year
  Sex: Female
  Weight: 90.3 kg

DRUGS (40)
  1. REPATHA [Suspect]
     Active Substance: EVOLOCUMAB
     Indication: BLOOD CHOLESTEROL INCREASED
     Dosage: 140 MILLIGRAM, Q2WK
     Route: 065
  2. FUROSEMIDE. [Concomitant]
     Active Substance: FUROSEMIDE
  3. TRAMADOL. [Concomitant]
     Active Substance: TRAMADOL
     Indication: PAIN
  4. PROTONIX [Concomitant]
     Active Substance: PANTOPRAZOLE SODIUM
  5. ECOTRIN [Concomitant]
     Active Substance: ASPIRIN
     Dosage: 81 MILLIGRAM
     Route: 048
  6. SYNTHROID [Concomitant]
     Active Substance: LEVOTHYROXINE SODIUM
     Dosage: 50 MICROGRAM, QD
     Route: 048
  7. VITAMIN D3 [Concomitant]
     Active Substance: CHOLECALCIFEROL
     Dosage: 2000 INTERNATIONAL UNIT
  8. LEVOTHYROXINE. [Concomitant]
     Active Substance: LEVOTHYROXINE
     Indication: THYROID DISORDER
  9. MULTIVITAMIN IRON [Concomitant]
     Dosage: UNK UNK, QD
     Route: 048
  10. COZAAR [Concomitant]
     Active Substance: LOSARTAN POTASSIUM
     Dosage: 25 MILLIGRAM, BID, I TABLET BY RROUTH 2 TIMES DAI
     Route: 048
  11. ZYLOPRIM [Concomitant]
     Active Substance: ALLOPURINOL
     Dosage: 100 MILLIGRAM,I TABLET BY MOUTH 2 TIMES DAILY
     Route: 048
  12. PARICALCITOL. [Concomitant]
     Active Substance: PARICALCITOL
     Indication: HYPERPARATHYROIDISM
  13. PROLIA [Suspect]
     Active Substance: DENOSUMAB
     Indication: OSTEOPOROSIS
     Dosage: UNK UNK, Q6MO
     Route: 065
     Dates: start: 20210219
  14. TYLENOL [Concomitant]
     Active Substance: ACETAMINOPHEN
     Dosage: 325 MILLIGRAM, BID
     Route: 048
  15. CELLCEPT [Concomitant]
     Active Substance: MYCOPHENOLATE MOFETIL\MYCOPHENOLATE MOFETIL HYDROCHLORIDE
     Dosage: 250 MILLIGRAM,I CAPSULE BY MOUTH EVERY 12 HOURS
  16. NEORAL [Concomitant]
     Active Substance: CYCLOSPORINE
     Dosage: 25 MILLIGRAM, BID, I TABLET BY RROUTH 2 TIMES DAI
  17. ATORVASTATIN [Concomitant]
     Active Substance: ATORVASTATIN
     Dosage: 40 MILLIGRAM
  18. VASCEPA [Concomitant]
     Active Substance: ICOSAPENT ETHYL
     Dosage: 1 GRAM, BID
     Route: 048
  19. VOLTAREN [DICLOFENAC DIETHYLAMINE] [Concomitant]
     Active Substance: DICLOFENAC DIETHYLAMINE
     Dosage: APPLY 2 GRAMS TOPICALLY 4 TIMES DAILY
  20. ASA [Concomitant]
     Active Substance: ASPIRIN
     Dosage: 81 MILLIGRAM, QOD
  21. LOSARTAN. [Concomitant]
     Active Substance: LOSARTAN
  22. ALLOPURINOL. [Concomitant]
     Active Substance: ALLOPURINOL
     Indication: GOUT
  23. GABAPENTIN. [Concomitant]
     Active Substance: GABAPENTIN
  24. ULTRAM [Concomitant]
     Active Substance: TRAMADOL HYDROCHLORIDE
     Dosage: 50 MILLIGRAM, I TABLET BY MOUTH EVERY 6 HOURS
     Route: 048
  25. HYDRALAZINE [Concomitant]
     Active Substance: HYDRALAZINE HYDROCHLORIDE
     Dosage: 25 MILLIGRAM,3 TABLETS BY MOUTH 2 TIMES DAILY
     Route: 048
  26. ATENOLOL. [Concomitant]
     Active Substance: ATENOLOL
     Indication: HEART RATE ABNORMAL
  27. CYCLOSPORINE. [Concomitant]
     Active Substance: CYCLOSPORINE
  28. ZEMPLAR [Concomitant]
     Active Substance: PARICALCITOL
     Dosage: 1 MICROGRAM
     Route: 048
  29. LASIX [Concomitant]
     Active Substance: FUROSEMIDE
     Dosage: 40 MILLIGRAM, BID
     Route: 048
  30. NEURONTIN [Concomitant]
     Active Substance: GABAPENTIN
     Dosage: 100 MILLIGRAM, 1 CAPSULE (100 MG) BY MOUTH IN THE MORNING, 2
     Route: 048
  31. TENORMIN [Concomitant]
     Active Substance: ATENOLOL
     Dosage: 25 MILLIGRAM, QD
     Route: 048
  32. REPATHA [Suspect]
     Active Substance: EVOLOCUMAB
  33. BABY ASPIRIN [Concomitant]
     Active Substance: ASPIRIN
  34. ARTIFICIAL TEARS [POLYVINYL ALCOHOL;POVIDONE] [Concomitant]
     Dosage: 1 DROP IN BOTH EYES 3 TIRNES DAILY AS NEEDED
  35. HYDRALAZINE [Concomitant]
     Active Substance: HYDRALAZINE HYDROCHLORIDE
     Dosage: 25 MILLIGRAM,3 TABLETS BY MOUTH 2 TIMES DAILY
     Route: 048
  36. HUMALOG [Concomitant]
     Active Substance: INSULIN LISPRO
     Dosage: 30 INTERNATIONAL UNIT
  37. LIPITOR [Concomitant]
     Active Substance: ATORVASTATIN CALCIUM
     Dosage: 20 MILLIGRAM, QD
  38. FERROUS SULFATE. [Concomitant]
     Active Substance: FERROUS SULFATE
     Dosage: 325 MILLIGRAM,(65 MG IRON) TABLET BY MOUTH 2 TIMES DAILY
     Route: 048
  39. MELATONIN [Concomitant]
     Active Substance: MELATONIN
     Dosage: 3 MILLIGRAM, QD
  40. PROTONIX [OMEPRAZOLE] [Concomitant]
     Active Substance: OMEPRAZOLE
     Dosage: 40 MILLIGRAM, QD
     Route: 048

REACTIONS (10)
  - Abdominal discomfort [Unknown]
  - Dizziness [Unknown]
  - Blood glucose abnormal [Unknown]
  - Humerus fracture [Unknown]
  - Myalgia [Unknown]
  - Hypotension [Unknown]
  - Diarrhoea [Unknown]
  - Limb discomfort [Unknown]
  - Muscle spasms [Unknown]
  - Fatigue [Unknown]

NARRATIVE: CASE EVENT DATE: 202003
